FAERS Safety Report 18287035 (Version 3)
Quarter: 2022Q4

REPORT INFORMATION
  Report Type: Spontaneous
  Country: US (occurrence: US)
  Receive Date: 20200921
  Receipt Date: 20221102
  Transmission Date: 20230113
  Serious: No
  Sender: FDA-Public Use
  Company Number: US-BIOGEN-2020BI00924121

PATIENT
  Sex: Male

DRUGS (3)
  1. TYSABRI [Suspect]
     Active Substance: NATALIZUMAB
     Indication: Primary progressive multiple sclerosis
     Route: 050
     Dates: start: 20180424, end: 20180814
  2. TYSABRI [Suspect]
     Active Substance: NATALIZUMAB
     Route: 050
  3. OCREVUS [Concomitant]
     Active Substance: OCRELIZUMAB
     Route: 050

REACTIONS (3)
  - Drug ineffective [Unknown]
  - Off label use [Unknown]
  - Frustration tolerance decreased [Recovered/Resolved]
